FAERS Safety Report 18283566 (Version 1)
Quarter: 2020Q3

REPORT INFORMATION
  Report Type: Spontaneous
  Country: US (occurrence: US)
  Receive Date: 20200918
  Receipt Date: 20200918
  Transmission Date: 20201103
  Serious: No
  Sender: FDA-Public Use
  Company Number: US-JNJFOC-20200910203

PATIENT
  Age: 6 Decade
  Sex: Male

DRUGS (1)
  1. CHILDRENS ZYRTEC [Suspect]
     Active Substance: CETIRIZINE HYDROCHLORIDE
     Indication: HYPERSENSITIVITY
     Dosage: 2 OR 3 TABLE SPOON?PRODUCT START DATE:BEGINNING OF THE SUMMER?LAST DRUG ADMIN: 01?SEP?2020
     Route: 048

REACTIONS (2)
  - Expired product administered [Unknown]
  - Overdose [Unknown]
